FAERS Safety Report 9214539 (Version 1)
Quarter: 2013Q2

REPORT INFORMATION
  Report Type: Spontaneous
  Country: US (occurrence: US)
  Receive Date: 20130405
  Receipt Date: 20130405
  Transmission Date: 20140414
  Serious: Yes (Hospitalization)
  Sender: FDA-Public Use
  Company Number: US-AMGEN-USASP2013023076

PATIENT
  Age: 56 Year
  Sex: Female

DRUGS (12)
  1. ENBREL [Suspect]
     Indication: PRODUCT USED FOR UNKNOWN INDICATION
     Dosage: 50 MG, QWK
     Route: 058
     Dates: start: 201111, end: 201205
  2. XANAX [Concomitant]
     Dosage: 2 MG, UNK
  3. LOMOTIL [Concomitant]
     Dosage: 2.5 MG, UNK
  4. ZOLOFT [Concomitant]
     Dosage: 25 MG, UNK
  5. AMLODIPINE [Concomitant]
     Dosage: 5 MG, UNK
  6. LYRICA [Concomitant]
     Dosage: 100 MG, UNK
  7. FENTANYL [Concomitant]
     Dosage: 25 MUG/HR, DIS
  8. SIMVASTATIN [Concomitant]
     Dosage: 5 MG, UNK
  9. TOPROL [Concomitant]
     Dosage: 50 MG, UNK, XL
  10. CLONIDINE [Concomitant]
     Dosage: 0.1 MG, UNK
  11. PREVACID [Concomitant]
     Dosage: 15 MG, UNK
  12. MORPHINE SULFATE [Concomitant]
     Dosage: 20 MG, UNK, ER

REACTIONS (1)
  - Colitis ulcerative [Unknown]
